FAERS Safety Report 4755465-2 (Version None)
Quarter: 2005Q3

REPORT INFORMATION
  Report Type: 
  Country: None (occurrence: None)
  Receive Date: 20050830
  Receipt Date: 20050707
  Transmission Date: 20060218
  Serious: Yes (Hospitalization)
  Sender: FDA-Public Use
  Company Number: BR-BOEHRINGER INGELHEIM PHARMACEUTICALS, INC.-2005-BP-11438BR

PATIENT
  Sex: Male
  Weight: 64 kg

DRUGS (10)
  1. TIPRANAVIR / RITONAVIR CAPSULES [Suspect]
     Indication: HIV INFECTION
     Dosage: 1000/400 MG
     Route: 048
     Dates: start: 20040617
  2. TENOFOVIR [Suspect]
     Indication: ADVERSE EVENT
     Route: 048
     Dates: start: 20040112
  3. LAMIVUDINE [Suspect]
     Indication: ADVERSE EVENT
     Route: 048
     Dates: start: 20010301
  4. STAVUDINE [Suspect]
     Indication: ADVERSE EVENT
     Route: 048
     Dates: start: 20031111
  5. COTRIMOXAZOLE [Suspect]
     Indication: ADVERSE EVENT
     Route: 048
     Dates: start: 19920723
  6. AZYTHROMYCIN [Concomitant]
     Indication: INFECTION PROPHYLAXIS
     Route: 048
     Dates: start: 20040601
  7. ALPRAZOLAM [Concomitant]
     Indication: ANXIETY
     Route: 048
     Dates: start: 20041122
  8. FOLINIC ACID [Concomitant]
     Indication: MYELODYSPLASTIC SYNDROME
     Route: 048
     Dates: start: 20031127
  9. ERTHROPOIETIN [Concomitant]
     Indication: MYELODYSPLASTIC SYNDROME
     Route: 058
     Dates: start: 20050210
  10. GRANULOKINE [Concomitant]
     Indication: MYELODYSPLASTIC SYNDROME
     Route: 058
     Dates: start: 20050223

REACTIONS (7)
  - CACHEXIA [None]
  - CHEST PAIN [None]
  - DIARRHOEA [None]
  - GASTRITIS [None]
  - MALAISE [None]
  - PYREXIA [None]
  - VOMITING [None]
